FAERS Safety Report 9528331 (Version 1)
Quarter: 2013Q1

REPORT INFORMATION
  Report Type: Spontaneous
  Country: US (occurrence: None)
  Receive Date: 20130314
  Receipt Date: 20130314
  Transmission Date: 20140127
  Serious: No
  Sender: FDA-Public Use
  Company Number: 1207USA003160

PATIENT
  Age: 60 Year
  Sex: Male
  Weight: 88.4 kg

DRUGS (3)
  1. VICTRELIS [Suspect]
     Route: 048
  2. RIBAVIRIN [Suspect]
     Route: 048
  3. PEGASYS [Suspect]
     Route: 058

REACTIONS (4)
  - Influenza like illness [None]
  - Dyspnoea [None]
  - Pruritus [None]
  - Fatigue [None]
